FAERS Safety Report 12213466 (Version 1)
Quarter: 2016Q1

REPORT INFORMATION
  Report Type: Other
  Country: US (occurrence: US)
  Receive Date: 20160328
  Receipt Date: 20160328
  Transmission Date: 20160526
  Serious: Yes (Other)
  Sender: FDA-Public Use
  Company Number: US-JUBILANT GENERICS LIMITED-1049754

PATIENT
  Age: 23 Year
  Sex: Male

DRUGS (2)
  1. 2C-B (2,5-DIMETHOXY-4-BROMOPHENETHYLAMINE) [Suspect]
     Active Substance: 4-BROMO-2,5-DIMETHOXYPHENETHYLAMINE
  2. OLANZAPINE. [Suspect]
     Active Substance: OLANZAPINE

REACTIONS (1)
  - Catatonia [Recovered/Resolved]

NARRATIVE: CASE EVENT DATE: 20160315
